FAERS Safety Report 9946240 (Version 1)
Quarter: 2014Q1

REPORT INFORMATION
  Report Type: Spontaneous
  Country: US (occurrence: US)
  Receive Date: 20140303
  Receipt Date: 20140303
  Transmission Date: 20141002
  Serious: No
  Sender: FDA-Public Use
  Company Number: US-AMGEN-USASP2013089847

PATIENT
  Age: 49 Year
  Sex: Male
  Weight: 88.44 kg

DRUGS (3)
  1. ENBREL [Suspect]
     Indication: RHEUMATOID ARTHRITIS
     Dosage: 50 MG, QWK
     Route: 058
     Dates: start: 2003, end: 201310
  2. FISH OIL [Concomitant]
     Dosage: UNK
  3. BENICAR [Concomitant]
     Dosage: UNK

REACTIONS (6)
  - Drug effect decreased [Unknown]
  - Musculoskeletal pain [Unknown]
  - Pain in extremity [Unknown]
  - Arthralgia [Unknown]
  - Local swelling [Unknown]
  - Joint swelling [Unknown]
